FAERS Safety Report 14024281 (Version 4)
Quarter: 2017Q4

REPORT INFORMATION
  Report Type: Spontaneous
  Country: US (occurrence: US)
  Receive Date: 20170929
  Receipt Date: 20171024
  Transmission Date: 20180321
  Serious: Yes (Hospitalization, Other)
  Sender: FDA-Public Use
  Company Number: PHEH2017US031077

PATIENT
  Age: 63 Year
  Sex: Male

DRUGS (2)
  1. AFINITOR [Suspect]
     Active Substance: EVEROLIMUS
     Indication: RENAL CANCER
     Dosage: QD
     Route: 048
  2. LENVATINIB [Suspect]
     Active Substance: LENVATINIB
     Indication: PRODUCT USED FOR UNKNOWN INDICATION
     Route: 065

REACTIONS (11)
  - Fall [Not Recovered/Not Resolved]
  - Hyperglycaemia [Unknown]
  - Blood pressure increased [Unknown]
  - Joint instability [Not Recovered/Not Resolved]
  - Drug level decreased [Unknown]
  - Thrombocytopenia [Unknown]
  - Haemorrhage [Unknown]
  - Weight decreased [Unknown]
  - Dry mouth [Not Recovered/Not Resolved]
  - Feeling abnormal [Recovering/Resolving]
  - Diarrhoea [Unknown]

NARRATIVE: CASE EVENT DATE: 20171001
